FAERS Safety Report 8333749-9 (Version None)
Quarter: 2012Q2

REPORT INFORMATION
  Report Type: 
  Country: None (occurrence: None)
  Receive Date: 20120503
  Receipt Date: 20120503
  Transmission Date: 20120825
  Serious: Yes (Life-Threatening, Other)
  Sender: FDA-Public Use
  Company Number: None

PATIENT
  Sex: Female
  Weight: 65.77 kg

DRUGS (1)
  1. CHANTIX [Suspect]
     Indication: SMOKING CESSATION THERAPY
     Dosage: |DOSAGETEXT: .5MG||STRENGTH: .5 MG||FREQ: 1BID||ROUTE: ORAL|
     Route: 048
     Dates: start: 20120315, end: 20120330

REACTIONS (2)
  - BLOOD GLUCOSE INCREASED [None]
  - ALTERED STATE OF CONSCIOUSNESS [None]
